FAERS Safety Report 7934453-9 (Version None)
Quarter: 2011Q4

REPORT INFORMATION
  Report Type: 
  Country: None (occurrence: None)
  Receive Date: 20111122
  Receipt Date: 20111119
  Transmission Date: 20120403
  Serious: Yes (Hospitalization)
  Sender: FDA-Public Use
  Company Number: US-GLAXOSMITHKLINE-A0954185A

PATIENT
  Sex: Female

DRUGS (1)
  1. LAMICTAL XR [Suspect]
     Route: 065

REACTIONS (4)
  - DIZZINESS [None]
  - PAIN IN JAW [None]
  - CONFUSIONAL STATE [None]
  - ABNORMAL BEHAVIOUR [None]
